FAERS Safety Report 15455575 (Version 3)
Quarter: 2019Q1

REPORT INFORMATION
  Report Type: Report from Study
  Country: US (occurrence: US)
  Receive Date: 20181002
  Receipt Date: 20190311
  Transmission Date: 20190417
  Serious: No
  Sender: FDA-Public Use
  Company Number: PHEH2018US040311

PATIENT
  Sex: Male

DRUGS (1)
  1. ENTRESTO [Suspect]
     Active Substance: SACUBITRIL\VALSARTAN
     Indication: PRODUCT USED FOR UNKNOWN INDICATION
     Dosage: UNK
     Route: 065

REACTIONS (7)
  - Amnesia [Unknown]
  - Sciatica [Unknown]
  - Cough [Unknown]
  - Hyperhidrosis [Unknown]
  - Malaise [Unknown]
  - Gait disturbance [Unknown]
  - Nerve compression [Unknown]
